FAERS Safety Report 4588052-X (Version None)
Quarter: 2005Q1

REPORT INFORMATION
  Report Type: 
  Country: None (occurrence: None)
  Receive Date: 20050216
  Receipt Date: 20050207
  Transmission Date: 20050727
  Serious: Yes (Hospitalization)
  Sender: FDA-Public Use
  Company Number: 2005026923

PATIENT
  Age: 68 Year
  Sex: Male

DRUGS (2)
  1. SPIRONOLACTONE [Suspect]
     Indication: ILL-DEFINED DISORDER
     Dosage: 50 MG, ORAL
     Route: 048
     Dates: end: 20040901
  2. TIAPRIDE (TIAPRIDE) [Suspect]
     Indication: ALCOHOLISM
     Dosage: 100 MG, ORAL
     Route: 048
     Dates: end: 20040901

REACTIONS (1)
  - HEPATIC ENCEPHALOPATHY [None]
